FAERS Safety Report 4696114-1 (Version None)
Quarter: 2005Q2

REPORT INFORMATION
  Report Type: 
  Country: None (occurrence: None)
  Receive Date: 20050620
  Receipt Date: 20050602
  Transmission Date: 20051028
  Serious: Yes (Death)
  Sender: FDA-Public Use
  Company Number: DSA_26575_2005

PATIENT
  Age: 52 Year
  Sex: Male

DRUGS (14)
  1. TAVOR [Suspect]
     Indication: AGGRESSION
     Dosage: VAR Q DAY PO
     Route: 048
     Dates: start: 20041024, end: 20041024
  2. ZYPREXA [Suspect]
     Indication: AGGRESSION
     Dosage: 10 MG QD IM
     Route: 030
     Dates: start: 20041022, end: 20041023
  3. ZYPREXA [Suspect]
     Indication: MANIA
     Dosage: 10 MG QD IM
     Route: 030
     Dates: start: 20041022, end: 20041023
  4. ZYPREXA [Suspect]
     Indication: SCHIZOAFFECTIVE DISORDER
     Dosage: 10 MG QD IM
     Route: 030
     Dates: start: 20041022, end: 20041023
  5. VALPROIC ACID [Concomitant]
  6. LYOGEN [Concomitant]
  7. EUTHYROX [Concomitant]
  8. TRUXAL [Concomitant]
  9. DIPIPERON [Concomitant]
  10. AKINETON [Concomitant]
  11. CLEXANE [Concomitant]
  12. ............. [Concomitant]
  13. ................ [Concomitant]
  14. DIPIPERON   (PIPAMPERONE) [Concomitant]

REACTIONS (1)
  - AGGRESSION [None]
